FAERS Safety Report 8541446-X (Version None)
Quarter: 2012Q3

REPORT INFORMATION
  Report Type: 
  Country: None (occurrence: None)
  Receive Date: 20120726
  Receipt Date: 20110919
  Transmission Date: 20120928
  Serious: No
  Sender: FDA-Public Use
  Company Number: US-ASTRAZENECA-2011SE56203

PATIENT
  Age: 64 Year
  Sex: Female
  Weight: 63.5 kg

DRUGS (8)
  1. CELEXA [Concomitant]
  2. SEROQUEL [Suspect]
     Indication: SLEEP DISORDER
     Route: 048
     Dates: start: 20060901, end: 20070501
  3. SYMBASTATIN [Concomitant]
     Indication: BLOOD CHOLESTEROL ABNORMAL
  4. TEMAZEPAM [Concomitant]
     Indication: SLEEP DISORDER
  5. CYCLOBENAZPRINE [Concomitant]
     Indication: MUSCLE SPASMS
  6. ASPIRIN [Concomitant]
     Indication: CARDIAC DISORDER
  7. LISINOPRIL [Concomitant]
     Indication: BLOOD PRESSURE ABNORMAL
  8. METFORMIN HYDROCHLORIDE [Concomitant]
     Indication: DIABETES MELLITUS
     Route: 048

REACTIONS (2)
  - OFF LABEL USE [None]
  - DIABETES MELLITUS [None]
